FAERS Safety Report 17288091 (Version 2)
Quarter: 2020Q1

REPORT INFORMATION
  Report Type: Spontaneous
  Country: GB (occurrence: GB)
  Receive Date: 20200120
  Receipt Date: 20200312
  Transmission Date: 20200409
  Serious: Yes (Hospitalization, Other)
  Sender: FDA-Public Use
  Company Number: GB-ACCORD-169728

PATIENT
  Age: 83 Year
  Sex: Male

DRUGS (3)
  1. FUROSEMIDE. [Suspect]
     Active Substance: FUROSEMIDE
     Indication: PRODUCT USED FOR UNKNOWN INDICATION
     Route: 048
     Dates: end: 20190726
  2. PARACETAMOL [Concomitant]
     Active Substance: ACETAMINOPHEN
  3. BISACODYL. [Concomitant]
     Active Substance: BISACODYL

REACTIONS (4)
  - Unresponsive to stimuli [Recovered/Resolved]
  - Escherichia bacteraemia [Recovered/Resolved]
  - Acute kidney injury [Recovered/Resolved]
  - Sepsis [Recovered/Resolved]

NARRATIVE: CASE EVENT DATE: 20190726
